FAERS Safety Report 6196674-8 (Version None)
Quarter: 2009Q2

REPORT INFORMATION
  Report Type: 
  Country: None (occurrence: None)
  Receive Date: 20090520
  Receipt Date: 20090511
  Transmission Date: 20091009
  Serious: Yes (Hospitalization)
  Sender: FDA-Public Use
  Company Number: B0574933A

PATIENT
  Age: 89 Year
  Sex: Female

DRUGS (3)
  1. ROSIGLITAZONE [Suspect]
     Route: 065
  2. DILTIAZEM [Concomitant]
  3. ASPIRIN [Concomitant]

REACTIONS (8)
  - ASTHENIA [None]
  - BLOOD SODIUM DECREASED [None]
  - HYPONATRAEMIA [None]
  - INAPPROPRIATE ANTIDIURETIC HORMONE SECRETION [None]
  - LOSS OF CONSCIOUSNESS [None]
  - NAUSEA [None]
  - URINE SODIUM INCREASED [None]
  - VOMITING [None]
